FAERS Safety Report 6553326-X (Version None)
Quarter: 2010Q1

REPORT INFORMATION
  Report Type: 
  Country: None (occurrence: None)
  Receive Date: 20100127
  Receipt Date: 20091006
  Transmission Date: 20100710
  Serious: No
  Sender: FDA-Public Use
  Company Number: A0795246A

PATIENT

DRUGS (6)
  1. IMITREX [Suspect]
     Indication: MIGRAINE
     Dosage: 6MG AS REQUIRED
     Route: 058
  2. IMITREX [Suspect]
     Dosage: 100MG AS REQUIRED
     Route: 048
     Dates: start: 20080701
  3. ZOLOFT [Suspect]
     Indication: DEPRESSION
     Dosage: 100MG PER DAY
     Route: 048
  4. REMERON [Concomitant]
  5. ESTRADIOL [Concomitant]
  6. ASPIRIN [Concomitant]

REACTIONS (5)
  - DRUG INTERACTION [None]
  - HYPOAESTHESIA [None]
  - LETHARGY [None]
  - MIGRAINE [None]
  - OVERDOSE [None]
